FAERS Safety Report 16137514 (Version 2)
Quarter: 2019Q2

REPORT INFORMATION
  Report Type: Report from Study
  Country: None (occurrence: CA)
  Receive Date: 20190330
  Receipt Date: 20190416
  Transmission Date: 20190711
  Serious: Yes (Other)
  Sender: FDA-Public Use
  Company Number: CA-ABBVIE-19K-028-2723185-00

PATIENT
  Sex: Female

DRUGS (1)
  1. HUMIRA [Suspect]
     Active Substance: ADALIMUMAB
     Indication: PSORIASIS
     Route: 058
     Dates: start: 20090630, end: 2017

REACTIONS (3)
  - Renal disorder [Unknown]
  - Liver disorder [Unknown]
  - Liver function test increased [Unknown]
